FAERS Safety Report 8990444 (Version 1)
Quarter: 2012Q4

REPORT INFORMATION
  Report Type: 
  Country: SG (occurrence: SG)
  Receive Date: 20121228
  Receipt Date: 20121228
  Transmission Date: 20130627
  Serious: Yes (Other)
  Sender: FDA-Public Use
  Company Number: SG-BAXTER-2012BAX028823

PATIENT
  Age: 53 Year
  Sex: Male

DRUGS (2)
  1. DOBUTAMINE HYDROCHLORIDE [Suspect]
     Indication: STRESS ECHOCARDIOGRAPHY
     Dosage: 40 MCG/KG/MIN
     Route: 042
  2. DOBUTAMINE HYDROCHLORIDE [Suspect]
     Indication: OFF LABEL USE

REACTIONS (3)
  - Stress cardiomyopathy [Recovered/Resolved]
  - Off label use [None]
  - Coronary artery disease [None]
